FAERS Safety Report 6321592-1 (Version None)
Quarter: 2009Q3

REPORT INFORMATION
  Report Type: 
  Country: None (occurrence: None)
  Receive Date: 20090819
  Receipt Date: 20090813
  Transmission Date: 20100115
  Serious: Yes (Other)
  Sender: FDA-Public Use
  Company Number: 2009SP016114

PATIENT
  Age: 42 Year
  Sex: Female

DRUGS (2)
  1. CLARITINE        (LORATADINE) [Suspect]
     Indication: URTICARIA
     Dosage: 1 DF; PO
     Route: 048
  2. MEDROL [Concomitant]

REACTIONS (1)
  - LARYNGEAL OEDEMA [None]
